FAERS Safety Report 7008018-X (Version None)
Quarter: 2010Q3

REPORT INFORMATION
  Report Type: 
  Country: None (occurrence: None)
  Receive Date: 20100922
  Receipt Date: 20100909
  Transmission Date: 20110219
  Serious: Yes (Hospitalization, Other)
  Sender: FDA-Public Use
  Company Number: PHHY2010JP54762

PATIENT
  Age: 48 Year
  Sex: Male

DRUGS (14)
  1. NEORAL [Suspect]
     Indication: STEM CELL TRANSPLANT
     Route: 048
  2. NEORAL [Suspect]
     Dosage: UNK
     Route: 048
  3. SANDIMMUNE [Suspect]
     Indication: STEM CELL TRANSPLANT
     Dosage: 3 MG/KG/DAY
     Route: 042
     Dates: start: 20090201
  4. PREDNISOLONE [Suspect]
     Indication: OBLITERATIVE BRONCHIOLITIS
     Dosage: 0.5 MG/KG
     Route: 048
  5. PREDNISOLONE [Suspect]
     Dosage: 0.3 MG/KG
     Route: 048
  6. TRIMETHOPRIM + SULFAMETHOXAZOLE [Concomitant]
     Route: 048
  7. CYCLOPHOSPHAMIDE [Concomitant]
     Indication: STEM CELL TRANSPLANT
     Route: 042
  8. METHOTREXATE [Concomitant]
     Indication: STEM CELL TRANSPLANT
     Dosage: 10 MG/SQM
  9. METHOTREXATE [Concomitant]
     Dosage: 7 MG/SQM
  10. STEROIDS NOS [Concomitant]
  11. CLARITHROMYCIN [Concomitant]
     Dosage: 200 MG/DAY
     Route: 048
  12. ITRACONAZOLE [Concomitant]
     Dosage: ITRACONAZOLE
     Route: 048
  13. SULFAMETHOXAZOLE AND TRIMETHOPRIM [Concomitant]
     Dosage: 320/1.600 MG DAILY
  14. MEROPENEM [Concomitant]
     Dosage: 0.5 G EVERY 8 HOURS

REACTIONS (11)
  - CHEST DISCOMFORT [None]
  - CHRONIC GRAFT VERSUS HOST DISEASE [None]
  - CYTOMEGALOVIRUS TEST POSITIVE [None]
  - DYSPNOEA [None]
  - DYSPNOEA EXERTIONAL [None]
  - NOCARDIOSIS [None]
  - OBLITERATIVE BRONCHIOLITIS [None]
  - PRODUCTIVE COUGH [None]
  - PSEUDOMONAS INFECTION [None]
  - RENAL IMPAIRMENT [None]
  - SICCA SYNDROME [None]
